FAERS Safety Report 5681960-8 (Version None)
Quarter: 2008Q1

REPORT INFORMATION
  Report Type: 
  Country: None (occurrence: None)
  Receive Date: 20080327
  Receipt Date: 20070330
  Transmission Date: 20080703
  Serious: No
  Sender: FDA-Public Use
  Company Number: US-BAYER-US-2007-011347

PATIENT
  Age: 49 Year
  Sex: Female
  Weight: 73 kg

DRUGS (4)
  1. MIRENA [Suspect]
     Indication: CONTRACEPTION
     Route: 015
     Dates: start: 20070301
  2. WELLBUTRIN [Concomitant]
  3. TOPEX [Concomitant]
  4. ALLEGRA [Concomitant]

REACTIONS (3)
  - APPLICATION SITE REACTION [None]
  - BURNING SENSATION [None]
  - COMPLICATION OF DEVICE INSERTION [None]
